FAERS Safety Report 20839254 (Version 1)
Quarter: 2022Q2

REPORT INFORMATION
  Report Type: Spontaneous
  Country: CN (occurrence: CN)
  Receive Date: 20220517
  Receipt Date: 20220517
  Transmission Date: 20220720
  Serious: Yes (Hospitalization)
  Sender: FDA-Public Use
  Company Number: CN-JNJFOC-20220529363

PATIENT
  Age: 12 Year
  Sex: Male
  Weight: 53.5 kg

DRUGS (2)
  1. CHILDRENS MOTRIN [Suspect]
     Active Substance: IBUPROFEN
     Indication: Pyrexia
     Route: 048
     Dates: start: 20220425, end: 20220425
  2. CEPHRADINE [Suspect]
     Active Substance: CEPHRADINE
     Indication: Bronchitis
     Route: 048
     Dates: start: 20220425, end: 20220425

REACTIONS (2)
  - Dyspnoea [Recovering/Resolving]
  - Rash [Recovering/Resolving]

NARRATIVE: CASE EVENT DATE: 20220425
